FAERS Safety Report 8474350-6 (Version None)
Quarter: 2012Q2

REPORT INFORMATION
  Report Type: 
  Country: None (occurrence: None)
  Receive Date: 20120628
  Receipt Date: 20110525
  Transmission Date: 20120825
  Serious: Yes (Other)
  Sender: FDA-Public Use
  Company Number: US-MYLANLABS-2011S1008655

PATIENT
  Age: 21 Year
  Sex: Female

DRUGS (4)
  1. VENLAFAXINE [Concomitant]
  2. CLOZAPINE [Suspect]
     Route: 048
     Dates: start: 20101228, end: 20110501
  3. BENZTROPINE MESYLATE [Concomitant]
  4. CLOZAPINE [Suspect]
     Route: 048
     Dates: start: 20101228, end: 20110501

REACTIONS (1)
  - GRANULOCYTOPENIA [None]
